FAERS Safety Report 7364997-2 (Version None)
Quarter: 2011Q1

REPORT INFORMATION
  Report Type: 
  Country: None (occurrence: None)
  Receive Date: 20110311
  Receipt Date: 20110225
  Transmission Date: 20110831
  Serious: Yes (Other)
  Sender: FDA-Public Use
  Company Number: 2011000969

PATIENT
  Age: 63 Year
  Sex: Male

DRUGS (1)
  1. TARCEVA [Suspect]
     Indication: PRODUCT USED FOR UNKNOWN INDICATION
     Dosage: (100 MG,QD),ORAL
     Route: 048
     Dates: start: 20110117

REACTIONS (3)
  - RASH [None]
  - LETHARGY [None]
  - PULMONARY EMBOLISM [None]
